FAERS Safety Report 12224980 (Version 4)
Quarter: 2016Q4

REPORT INFORMATION
  Report Type: Spontaneous
  Country: US (occurrence: US)
  Receive Date: 20160331
  Receipt Date: 20161020
  Transmission Date: 20170207
  Serious: Yes (Other)
  Sender: FDA-Public Use
  Company Number: US-009507513-1603USA012911

PATIENT
  Age: 26 Year
  Sex: Female
  Weight: 122.9 kg

DRUGS (2)
  1. NEXPLANON [Suspect]
     Active Substance: ETONOGESTREL
     Indication: CONTRACEPTION
     Dosage: ONE ROD EVERY THREE YEARS
     Route: 059
     Dates: start: 20151203, end: 20160324
  2. IRON (UNSPECIFIED) (+) MINERALS (UNSPECIFIED) (+) VITAMINS (UNSPECIFIE [Concomitant]
     Active Substance: IRON\MINERALS\VITAMINS
     Dosage: DAILY
     Route: 048

REACTIONS (6)
  - Meningitis [Unknown]
  - Feeling abnormal [Unknown]
  - Headache [Unknown]
  - Maternal exposure during pregnancy [Recovered/Resolved]
  - Medical device removal [Unknown]
  - Caesarean section [Unknown]

NARRATIVE: CASE EVENT DATE: 2016
